FAERS Safety Report 8136134-8 (Version None)
Quarter: 2012Q1

REPORT INFORMATION
  Report Type: 
  Country: None (occurrence: None)
  Receive Date: 20120214
  Receipt Date: 20120207
  Transmission Date: 20120608
  Serious: No
  Sender: FDA-Public Use
  Company Number: US-COVIDIEN/TYCO HEALTHCARE/MALLINCKRODT-T201200583

PATIENT
  Sex: Male
  Weight: 78.458 kg

DRUGS (4)
  1. VALIUM [Concomitant]
     Indication: INSOMNIA
     Dosage: EVERY HS
  2. FENTANYL-100 [Suspect]
     Indication: PAIN
     Dosage: 25 UG/HR, 1 FTS Q 3 DAYS
     Dates: start: 20120119
  3. PLAVIX [Concomitant]
     Dosage: UNK, QD
  4. ROXICODONE [Concomitant]
     Indication: PAIN
     Dosage: 30 MG, QID PRN

REACTIONS (5)
  - PAIN [None]
  - BURNING SENSATION [None]
  - CHILLS [None]
  - APPLICATION SITE REACTION [None]
  - FATIGUE [None]
